FAERS Safety Report 9870497 (Version 2)
Quarter: 2014Q1

REPORT INFORMATION
  Report Type: Spontaneous
  Country: EC (occurrence: EC)
  Receive Date: 20140205
  Receipt Date: 20140303
  Transmission Date: 20141002
  Serious: Yes (Death)
  Sender: FDA-Public Use
  Company Number: EC-PFIZER INC-2014031717

PATIENT
  Age: 95 Year
  Sex: Female

DRUGS (2)
  1. NORVASC [Suspect]
     Indication: HYPERTENSION
     Dosage: 10 MG, 1X/DAY
     Route: 048
     Dates: start: 200002, end: 20131118
  2. EXELON [Concomitant]
     Indication: DEMENTIA ALZHEIMER^S TYPE
     Dosage: 1.5 MG, UNK
     Route: 048

REACTIONS (1)
  - Cerebrovascular accident [Fatal]
